FAERS Safety Report 7622461-7 (Version None)
Quarter: 2011Q3

REPORT INFORMATION
  Report Type: 
  Country: None (occurrence: None)
  Receive Date: 20110720
  Receipt Date: 20110712
  Transmission Date: 20111222
  Serious: Yes (Hospitalization)
  Sender: FDA-Public Use
  Company Number: GR-UCBSA-037106

PATIENT
  Age: 19 Year
  Sex: Male

DRUGS (5)
  1. VIMPAT [Suspect]
     Route: 048
  2. VIMPAT [Suspect]
     Route: 048
  3. CARBAMAZEPINE [Concomitant]
  4. VALPROIC ACID [Concomitant]
  5. VIMPAT [Suspect]
     Indication: GRAND MAL CONVULSION
     Route: 048

REACTIONS (1)
  - CONVULSION [None]
